FAERS Safety Report 6430379-0 (Version None)
Quarter: 2009Q4

REPORT INFORMATION
  Report Type: 
  Country: None (occurrence: None)
  Receive Date: 20091104
  Receipt Date: 20091026
  Transmission Date: 20100525
  Serious: Yes (Other)
  Sender: FDA-Public Use
  Company Number: 1000009706

PATIENT
  Age: 34 Year
  Sex: Female

DRUGS (20)
  1. SAVELLA [Suspect]
     Indication: FIBROMYALGIA
     Dosage: 12.5 MG (12.5 MG, 1 IN 1 D), ORAL
     Route: 048
     Dates: start: 20091023, end: 20091023
  2. SAVELLA [Suspect]
     Indication: FIBROMYALGIA
     Dosage: 25 MG (12.5 MG, 1 IN 1 D), ORAL
     Route: 048
     Dates: start: 20091024, end: 20091026
  3. ALBUTEROL (INHALANT) [Concomitant]
  4. ASACOL [Concomitant]
  5. ASPIRIN [Concomitant]
  6. DARVOCET-N 100 [Concomitant]
  7. PERCOCET [Concomitant]
  8. PROZAC [Concomitant]
  9. SYNTHROID [Concomitant]
  10. ZYRTEC [Concomitant]
  11. MAXALT [Concomitant]
  12. LIDODERM [Concomitant]
  13. FLEXERIL [Concomitant]
  14. XANAX [Concomitant]
  15. OMEPRAZOLE [Concomitant]
  16. CLCIUM [Concomitant]
  17. FLAXSEED OIL (CAPSULES) [Concomitant]
  18. FOLIC ACID TAB [Concomitant]
  19. MAGNESIUM OXIDE [Concomitant]
  20. PRENATAL VITAMINS (TABLETS) [Concomitant]

REACTIONS (1)
  - HOMICIDAL IDEATION [None]
